FAERS Safety Report 20500207 (Version 6)
Quarter: 2022Q3

REPORT INFORMATION
  Report Type: Spontaneous
  Country: GB (occurrence: GB)
  Receive Date: 20220222
  Receipt Date: 20220920
  Transmission Date: 20221026
  Serious: Yes (Other)
  Sender: FDA-Public Use
  Company Number: GB-MYLANLABS-2022M1003724

PATIENT
  Age: 58 Year
  Sex: Male

DRUGS (1)
  1. CLOZARIL [Interacting]
     Active Substance: CLOZAPINE
     Indication: Schizophrenia
     Dosage: UNK
     Route: 048
     Dates: start: 20220110

REACTIONS (6)
  - Differential white blood cell count abnormal [Unknown]
  - Thrombocytopenia [Not Recovered/Not Resolved]
  - Eosinophilia [Not Recovered/Not Resolved]
  - Antipsychotic drug level decreased [Unknown]
  - Treatment noncompliance [Unknown]
  - Drug interaction [Unknown]

NARRATIVE: CASE EVENT DATE: 20220113
